FAERS Safety Report 9314619 (Version 1)
Quarter: 2013Q2

REPORT INFORMATION
  Report Type: Spontaneous
  Country: BR (occurrence: BR)
  Receive Date: 20130529
  Receipt Date: 20130529
  Transmission Date: 20140414
  Serious: Yes (Other)
  Sender: FDA-Public Use
  Company Number: BR-SANOFI-AVENTIS-2013SA052143

PATIENT
  Sex: Female

DRUGS (1)
  1. CLEXANE [Suspect]
     Indication: PRODUCT USED FOR UNKNOWN INDICATION
     Route: 051

REACTIONS (3)
  - Unevaluable event [Unknown]
  - Exposure during pregnancy [Unknown]
  - Abdominal pain [Unknown]
